FAERS Safety Report 9007170 (Version 4)
Quarter: 2013Q3

REPORT INFORMATION
  Report Type: Spontaneous
  Country: US (occurrence: US)
  Receive Date: 20130108
  Receipt Date: 20130909
  Transmission Date: 20140515
  Serious: No
  Sender: FDA-Public Use
  Company Number: US-PFIZER INC-2012313704

PATIENT
  Age: 53 Year
  Sex: Female
  Weight: 52.15 kg

DRUGS (4)
  1. GENOTROPIN [Suspect]
     Indication: GROWTH HORMONE DEFICIENCY
     Dosage: 0.1ML AND 0.2ML, EVERY ALTERNATE DAY
     Route: 030
     Dates: start: 201211, end: 20121210
  2. GENOTROPIN [Suspect]
     Indication: HYPOPITUITARISM
     Dosage: 0.1ML AND 0.2ML, EVERY ALTERNATE DAY
     Dates: end: 201308
  3. BACLOFEN [Concomitant]
     Dosage: UNK
  4. MEDROL [Concomitant]
     Dosage: UNK

REACTIONS (6)
  - Incorrect route of drug administration [Unknown]
  - Product odour abnormal [Unknown]
  - Feeling abnormal [Unknown]
  - Musculoskeletal stiffness [Unknown]
  - Malaise [Recovering/Resolving]
  - Reaction to drug excipients [Recovering/Resolving]
